FAERS Safety Report 14212816 (Version 1)
Quarter: 2017Q4

REPORT INFORMATION
  Report Type: Spontaneous
  Country: US (occurrence: None)
  Receive Date: 20171121
  Receipt Date: 20171121
  Transmission Date: 20180321
  Serious: Yes (Other)
  Sender: FDA-Public Use
  Company Number: None

PATIENT
  Age: 72 Year
  Sex: Male

DRUGS (1)
  1. HARVONI [Suspect]
     Active Substance: LEDIPASVIR\SOFOSBUVIR
     Indication: HEPATITIS C
     Dosage: 90/400MG DAILY PO
     Route: 048
     Dates: start: 20171003

REACTIONS (5)
  - Drug dose omission [None]
  - Nausea [None]
  - Pain [None]
  - Vomiting [None]
  - Pyrexia [None]

NARRATIVE: CASE EVENT DATE: 20171114
